FAERS Safety Report 20220311 (Version 2)
Quarter: 2022Q1

REPORT INFORMATION
  Report Type: Spontaneous
  Country: US (occurrence: US)
  Receive Date: 20211223
  Receipt Date: 20220208
  Transmission Date: 20220423
  Serious: Yes (Hospitalization)
  Sender: FDA-Public Use
  Company Number: US-BIOVITRUM-2021US12395

PATIENT
  Age: 1 Year
  Sex: Male

DRUGS (3)
  1. SYNAGIS [Suspect]
     Active Substance: PALIVIZUMAB
     Indication: Hypoxia
     Route: 030
     Dates: start: 202110
  2. SABRIL [Concomitant]
     Active Substance: VIGABATRIN
     Indication: Epilepsy
     Dosage: MIX 1 PACKET IN 10ML WATER AND GIVE 10ML BY MOUTH IN THE MORNING AND MIX 2 PACKETS IN 20 ML WATER AN
  3. SYNAGIS [Suspect]
     Active Substance: PALIVIZUMAB
     Indication: Chronic respiratory failure

REACTIONS (1)
  - Hospitalisation [Unknown]

NARRATIVE: CASE EVENT DATE: 20211207
